FAERS Safety Report 19468660 (Version 1)
Quarter: 2021Q2

REPORT INFORMATION
  Report Type: Spontaneous
  Country: AU (occurrence: AU)
  Receive Date: 20210628
  Receipt Date: 20210628
  Transmission Date: 20210717
  Serious: Yes (Other)
  Sender: FDA-Public Use
  Company Number: NVSC2021AU134323

PATIENT

DRUGS (1)
  1. TERBINAFINE SANDOZ [Suspect]
     Active Substance: TERBINAFINE
     Indication: ONYCHOMYCOSIS
     Dosage: UNK UNK, QD
     Route: 065

REACTIONS (11)
  - Pain [Unknown]
  - Product shape issue [Unknown]
  - Onychomycosis [Unknown]
  - Renal pain [Unknown]
  - Insomnia [Unknown]
  - Wrong technique in product usage process [Unknown]
  - Fungal skin infection [Unknown]
  - Abdominal pain upper [Unknown]
  - Fatigue [Unknown]
  - Depression [Unknown]
  - Drug intolerance [Unknown]
